FAERS Safety Report 11965280 (Version 1)
Quarter: 2016Q1

REPORT INFORMATION
  Report Type: Spontaneous
  Country: US (occurrence: None)
  Receive Date: 20160125
  Receipt Date: 20160125
  Transmission Date: 20160526
  Serious: Yes (Hospitalization)
  Sender: FDA-Public Use
  Company Number: None

PATIENT
  Age: 72 Year
  Sex: Female
  Weight: 50.7 kg

DRUGS (1)
  1. REGORAFENIB [Suspect]
     Active Substance: REGORAFENIB
     Indication: COLORECTAL CANCER
     Route: 048
     Dates: start: 20151211

REACTIONS (4)
  - Hypotension [None]
  - Tachycardia [None]
  - Malaise [None]
  - Dizziness [None]

NARRATIVE: CASE EVENT DATE: 20160121
